FAERS Safety Report 9511206 (Version 2)
Quarter: 2014Q1

REPORT INFORMATION
  Report Type: Spontaneous
  Country: US (occurrence: None)
  Receive Date: 20130305
  Receipt Date: 20140306
  Transmission Date: 20141002
  Serious: Yes (Hospitalization, Other)
  Sender: FDA-Public Use
  Company Number: 163-21880-12120696

PATIENT
  Age: 77 Year
  Sex: Female

DRUGS (3)
  1. VELCADE [Suspect]
     Indication: PLASMA CELL MYELOMA
     Dosage: DAYS, 1, 4, 8, 11
     Route: 042
     Dates: start: 201211, end: 201212
  2. DEXAMETHASONE [Suspect]
     Indication: PLASMA CELL MYELOMA
     Dosage: 20MG, D1,2,4,5,8,9,11,12 C1L, THEN WKLY, PO
     Route: 048
  3. REVLIMID [Suspect]
     Indication: PLASMA CELL MYELOMA
     Dosage: 25 MG, 14 IN 21, PO
     Route: 048
     Dates: start: 20121119, end: 201211

REACTIONS (3)
  - Flatulence [None]
  - Abdominal distension [None]
  - Nausea [None]
